FAERS Safety Report 12490707 (Version 3)
Quarter: 2019Q1

REPORT INFORMATION
  Report Type: Spontaneous
  Country: US (occurrence: US)
  Receive Date: 20160622
  Receipt Date: 20190306
  Transmission Date: 20190417
  Serious: Yes (Other)
  Sender: FDA-Public Use
  Company Number: US-JAZZ-2015-US-021031

PATIENT
  Age: 29 Year
  Sex: Male
  Weight: 82.99 kg

DRUGS (2)
  1. XYREM [Suspect]
     Active Substance: SODIUM OXYBATE
     Indication: CATAPLEXY
  2. XYREM [Suspect]
     Active Substance: SODIUM OXYBATE
     Indication: NARCOLEPSY
     Dosage: 2.25 G
     Route: 048
     Dates: start: 20151202, end: 20151202

REACTIONS (5)
  - Seasonal allergy [Unknown]
  - Feeling abnormal [Unknown]
  - Apnoea [Not Recovered/Not Resolved]
  - Unevaluable event [Unknown]
  - Snoring [Unknown]

NARRATIVE: CASE EVENT DATE: 20151202
